FAERS Safety Report 23432262 (Version 1)
Quarter: 2024Q1

REPORT INFORMATION
  Report Type: Report from Study
  Country: CO (occurrence: CO)
  Receive Date: 20240123
  Receipt Date: 20240123
  Transmission Date: 20240409
  Serious: Yes (Hospitalization, Other)
  Sender: FDA-Public Use
  Company Number: CO-ALLERGAN-2304352US

PATIENT
  Sex: Female
  Weight: 62 kg

DRUGS (5)
  1. BOTOX [Suspect]
     Active Substance: ONABOTULINUMTOXINA
     Indication: Migraine
     Dosage: TIME INTERVAL: AS NECESSARY: FORM STRENGTH: 200 UNIT
     Route: 030
     Dates: start: 20231009, end: 20231009
  2. BOTOX [Suspect]
     Active Substance: ONABOTULINUMTOXINA
     Indication: Migraine
     Dosage: TIME INTERVAL: AS NECESSARY
     Route: 030
     Dates: start: 20220326, end: 20220326
  3. BOTOX [Suspect]
     Active Substance: ONABOTULINUMTOXINA
     Indication: Migraine
     Dosage: TIME INTERVAL: AS NECESSARY: FORM STRENGTH: 200 UNIT
     Route: 030
     Dates: start: 202212, end: 202212
  4. BOTOX [Suspect]
     Active Substance: ONABOTULINUMTOXINA
     Indication: Migraine
     Dosage: TIME INTERVAL: AS NECESSARY
     Route: 065
     Dates: start: 20230626, end: 20230626
  5. BOTOX [Suspect]
     Active Substance: ONABOTULINUMTOXINA
     Indication: Migraine
     Dosage: TIME INTERVAL: AS NECESSARY: FORM STRENGTH: 200 UNIT
     Route: 030
     Dates: start: 20230126, end: 20230126

REACTIONS (23)
  - Seizure [Not Recovered/Not Resolved]
  - Migraine [Not Recovered/Not Resolved]
  - Neoplasm [Not Recovered/Not Resolved]
  - Photophobia [Not Recovered/Not Resolved]
  - Oxygen saturation abnormal [Not Recovered/Not Resolved]
  - Vision blurred [Recovered/Resolved]
  - Hyperacusis [Not Recovered/Not Resolved]
  - Feeling abnormal [Recovered/Resolved with Sequelae]
  - Nasal cyst [Not Recovered/Not Resolved]
  - Nasal polyps [Not Recovered/Not Resolved]
  - Discouragement [Not Recovered/Not Resolved]
  - Schizophrenia [Not Recovered/Not Resolved]
  - Mucosal hypertrophy [Not Recovered/Not Resolved]
  - Abdominal discomfort [Not Recovered/Not Resolved]
  - Pain [Not Recovered/Not Resolved]
  - Head discomfort [Not Recovered/Not Resolved]
  - Vomiting [Not Recovered/Not Resolved]
  - Vision blurred [Not Recovered/Not Resolved]
  - Malaise [Not Recovered/Not Resolved]
  - Headache [Not Recovered/Not Resolved]
  - Nausea [Not Recovered/Not Resolved]
  - Symptom recurrence [Unknown]
  - Therapeutic response shortened [Unknown]

NARRATIVE: CASE EVENT DATE: 20220101
